FAERS Safety Report 19407432 (Version 1)
Quarter: 2021Q2

REPORT INFORMATION
  Report Type: Spontaneous
  Country: US (occurrence: US)
  Receive Date: 20210612
  Receipt Date: 20210612
  Transmission Date: 20210717
  Serious: Yes (Other)
  Sender: FDA-Public Use
  Company Number: US-UNITED THERAPEUTICS-UNT-2021-008397

PATIENT
  Age: 44 Year
  Sex: Female

DRUGS (8)
  1. ADEMPAS [Concomitant]
     Active Substance: RIOCIGUAT
     Indication: PULMONARY ARTERIAL HYPERTENSION
     Dosage: UNK
     Route: 065
  2. RUCONEST [Concomitant]
     Active Substance: HUMAN C1-ESTERASE INHIBITOR
     Indication: COMPLEMENT DEFICIENCY DISEASE
     Dosage: UNK
     Route: 065
  3. TYVASO [Interacting]
     Active Substance: TREPROSTINIL
     Dosage: 12 ?G, QID
     Dates: start: 20210512
  4. TYVASO [Suspect]
     Active Substance: TREPROSTINIL
     Indication: PULMONARY ARTERIAL HYPERTENSION
     Dosage: UNK
     Dates: start: 20210501
  5. FIRAZYR [Concomitant]
     Active Substance: ICATIBANT ACETATE
     Indication: COMPLEMENT DEFICIENCY DISEASE
     Dosage: UNK
     Route: 065
  6. TYVASO [Interacting]
     Active Substance: TREPROSTINIL
     Dosage: 18 ?G, QID
     Dates: start: 202105, end: 202105
  7. TYVASO [Interacting]
     Active Substance: TREPROSTINIL
     Dosage: 6 ?G, QID
     Dates: start: 20210505, end: 202105
  8. MOTEGRITY [Interacting]
     Active Substance: PRUCALOPRIDE SUCCINATE
     Indication: PRODUCT USED FOR UNKNOWN INDICATION
     Dosage: UNK , QD (IN MORNING)
     Route: 065

REACTIONS (19)
  - Bone pain [Unknown]
  - Painful respiration [Unknown]
  - Diarrhoea [Unknown]
  - Drug interaction [Unknown]
  - Presyncope [Unknown]
  - Productive cough [Unknown]
  - Myalgia [Unknown]
  - Chest pain [Unknown]
  - Cough [Unknown]
  - Dizziness [Unknown]
  - Taste disorder [Unknown]
  - Abdominal pain [Unknown]
  - Malabsorption [Unknown]
  - Gastric disorder [Unknown]
  - Nausea [Unknown]
  - Intestinal obstruction [Unknown]
  - Headache [Unknown]
  - Throat irritation [Unknown]
  - Fatigue [Unknown]

NARRATIVE: CASE EVENT DATE: 202105
